FAERS Safety Report 12609263 (Version 1)
Quarter: 2016Q3

REPORT INFORMATION
  Report Type: Spontaneous
  Country: DE (occurrence: DE)
  Receive Date: 20160801
  Receipt Date: 20160801
  Transmission Date: 20161109
  Serious: Yes (Other)
  Sender: FDA-Public Use
  Company Number: DE-AUROBINDO-AUR-APL-2016-09666

PATIENT
  Age: 54 Year
  Sex: Female

DRUGS (1)
  1. PAROXETINE. [Suspect]
     Active Substance: PAROXETINE
     Indication: MENTAL DISORDER
     Route: 065

REACTIONS (3)
  - Insomnia [Recovered/Resolved]
  - Energy increased [Recovered/Resolved]
  - Aggression [Recovered/Resolved]
